FAERS Safety Report 6681549-8 (Version None)
Quarter: 2010Q2

REPORT INFORMATION
  Report Type: 
  Country: None (occurrence: None)
  Receive Date: 20100414
  Receipt Date: 20100408
  Transmission Date: 20101027
  Serious: Yes (Other)
  Sender: FDA-Public Use
  Company Number: PHHY2010GB15036

PATIENT
  Sex: Female

DRUGS (1)
  1. EXELON [Suspect]
     Dosage: 9.5 MG, QD
     Route: 062

REACTIONS (3)
  - FAECES DISCOLOURED [None]
  - HAEMATEMESIS [None]
  - MELAENA [None]
